FAERS Safety Report 5259700-6 (Version None)
Quarter: 2007Q1

REPORT INFORMATION
  Report Type: 
  Country: None (occurrence: None)
  Receive Date: 20070307
  Receipt Date: 20070307
  Transmission Date: 20070707
  Serious: No
  Sender: FDA-Public Use
  Company Number: None

PATIENT
  Sex: Female
  Weight: 58.0604 kg

DRUGS (1)
  1. METROGEL [Suspect]
     Indication: VAGINITIS BACTERIAL
     Dosage: ONE TUBE  NIGHTLY VAG
     Route: 067
     Dates: start: 20070213, end: 20070217

REACTIONS (6)
  - BREAST FIBROSIS [None]
  - BREAST MASS [None]
  - BREAST PAIN [None]
  - MENSTRUATION IRREGULAR [None]
  - METRORRHAGIA [None]
  - VAGINAL HAEMORRHAGE [None]
